FAERS Safety Report 25305100 (Version 2)
Quarter: 2025Q2

REPORT INFORMATION
  Report Type: Spontaneous
  Country: US (occurrence: US)
  Receive Date: 20250513
  Receipt Date: 20250522
  Transmission Date: 20250716
  Serious: Yes (Hospitalization)
  Sender: TEVA
  Company Number: US-TEVA-VS-3329151

PATIENT
  Age: 74 Year
  Sex: Female

DRUGS (1)
  1. NAPROXEN [Suspect]
     Active Substance: NAPROXEN
     Indication: Fibromyalgia
     Dosage: RECEIVED MORE THAN 30 PILLS
     Route: 065

REACTIONS (8)
  - Pneumopericardium [Unknown]
  - Pericarditis [Unknown]
  - Intentional product misuse [Unknown]
  - Intentional overdose [Unknown]
  - Gastrointestinal fistula [Unknown]
  - Melaena [Unknown]
  - Anastomotic ulcer [Unknown]
  - Cardiac disorder [Unknown]
